FAERS Safety Report 6033429-9 (Version None)
Quarter: 2009Q1

REPORT INFORMATION
  Report Type: 
  Country: None (occurrence: None)
  Receive Date: 20090109
  Receipt Date: 20081224
  Transmission Date: 20090719
  Serious: No
  Sender: FDA-Public Use
  Company Number: US-B.I. PHARMACEUTICALS,INC./RIDGEFIELD-2008-BP-17746BP

PATIENT
  Sex: Female

DRUGS (5)
  1. CATAPRES-TTS-1 [Suspect]
     Indication: HYPERTENSION
     Dosage: .1MG
     Route: 062
     Dates: start: 20080401, end: 20080801
  2. LISINOPRIL [Concomitant]
     Dosage: 60MG
  3. DILTIAZEM CD [Concomitant]
     Dosage: 300MG
  4. HYDROCHLOROTHIAZIDE [Concomitant]
     Dosage: 25MG
  5. POT CHLOR [Concomitant]
     Dosage: 20MEQ

REACTIONS (2)
  - APPLICATION SITE IRRITATION [None]
  - APPLICATION SITE RASH [None]
